FAERS Safety Report 10168353 (Version 1)
Quarter: 2014Q2

REPORT INFORMATION
  Report Type: Spontaneous
  Country: US (occurrence: US)
  Receive Date: 20140513
  Receipt Date: 20140513
  Transmission Date: 20141212
  Serious: Yes (Death, Hospitalization)
  Sender: FDA-Public Use
  Company Number: PHHY2014US056341

PATIENT
  Age: 35 Year
  Sex: Male

DRUGS (12)
  1. VANCOMYCIN [Suspect]
     Indication: SKIN INFECTION
  2. VANCOMYCIN [Suspect]
     Indication: SOFT TISSUE INFECTION
  3. TEICOPLANIN [Suspect]
     Dates: end: 20120815
  4. CEFEPIME [Concomitant]
     Indication: SKIN INFECTION
  5. CEFEPIME [Concomitant]
     Indication: SOFT TISSUE INFECTION
  6. GEMCITABINE [Concomitant]
     Indication: MYCOSIS FUNGOIDES
  7. GEMCITABINE [Concomitant]
     Indication: SKIN CANCER
  8. VINORELBINE [Concomitant]
     Indication: MYCOSIS FUNGOIDES
  9. VINORELBINE [Concomitant]
     Indication: SKIN CANCER
  10. DEXAMETHASONE [Concomitant]
     Indication: MYCOSIS FUNGOIDES
  11. DEXAMETHASONE [Concomitant]
     Indication: SKIN CANCER
  12. PIPERACILLIN W/TAZOBACTAM [Concomitant]
     Dates: start: 201207

REACTIONS (6)
  - Death [Fatal]
  - Multi-organ failure [Unknown]
  - Staphylococcal infection [Unknown]
  - Enterococcal infection [Unknown]
  - Pyrexia [Unknown]
  - Drug resistance [Unknown]
